FAERS Safety Report 4919877-6 (Version None)
Quarter: 2006Q1

REPORT INFORMATION
  Report Type: 
  Country: None (occurrence: None)
  Receive Date: 20060223
  Receipt Date: 20060215
  Transmission Date: 20060701
  Serious: Yes (Other)
  Sender: FDA-Public Use
  Company Number: US-JNJFOC-20060204246

PATIENT
  Sex: Male
  Weight: 90.72 kg

DRUGS (8)
  1. DURAGESIC-100 [Suspect]
     Dosage: TWO 75 UG/HR PATCHES.
     Route: 062
  2. DURAGESIC-100 [Suspect]
     Route: 062
  3. METOPROLOL [Concomitant]
     Indication: BLOOD PRESSURE
     Route: 048
  4. INSULIN [Concomitant]
     Dosage: 40 U
     Route: 058
  5. PERCOCET [Concomitant]
     Route: 048
  6. PERCOCET [Concomitant]
     Indication: PAIN
     Dosage: 10 MG / 325 MG, AS NEEDED
     Route: 048
  7. ASPIRIN [Concomitant]
     Route: 048
  8. AMBIEN [Concomitant]
     Indication: INSOMNIA
     Dosage: 10 MG AS NEEDED
     Route: 048

REACTIONS (4)
  - ASTHENIA [None]
  - BACK PAIN [None]
  - FALL [None]
  - SPINAL COMPRESSION FRACTURE [None]
